FAERS Safety Report 8578093-X (Version None)
Quarter: 2012Q3

REPORT INFORMATION
  Report Type: 
  Country: None (occurrence: None)
  Receive Date: 20120808
  Receipt Date: 20120802
  Transmission Date: 20120928
  Serious: Yes (Other)
  Sender: FDA-Public Use
  Company Number: PHHY2012MX067531

PATIENT
  Sex: Female

DRUGS (1)
  1. EXFORGE HCT [Suspect]
     Indication: HYPERTENSION
     Dosage: 1 DF (160MG VALS/ 5MG AMLO/ 12.5MG HCT), DAILY
     Dates: start: 20110801, end: 20120401

REACTIONS (1)
  - POISONING [None]
